FAERS Safety Report 16808091 (Version 1)
Quarter: 2019Q3

REPORT INFORMATION
  Report Type: Spontaneous
  Country: GB (occurrence: GB)
  Receive Date: 20190916
  Receipt Date: 20190916
  Transmission Date: 20191005
  Serious: Yes (Disabling)
  Sender: FDA-Public Use
  Company Number: GB-SUN PHARMACEUTICAL INDUSTRIES LTD-2019RR-220532

PATIENT
  Age: 18 Year
  Sex: Male
  Weight: 78.46 kg

DRUGS (1)
  1. FLUOXETINE [Suspect]
     Active Substance: FLUOXETINE HYDROCHLORIDE
     Indication: SOCIAL ANXIETY DISORDER
     Dosage: 20 MILLIGRAM, UNK
     Route: 048
     Dates: start: 20100815, end: 20150720

REACTIONS (3)
  - Erectile dysfunction [Not Recovered/Not Resolved]
  - Loss of libido [Unknown]
  - Sexual dysfunction [Unknown]

NARRATIVE: CASE EVENT DATE: 20101230
